FAERS Safety Report 6988959-X (Version None)
Quarter: 2010Q3

REPORT INFORMATION
  Report Type: 
  Country: None (occurrence: None)
  Receive Date: 20100916
  Receipt Date: 20090723
  Transmission Date: 20110219
  Serious: Yes (Death)
  Sender: FDA-Public Use
  Company Number: PE-PFIZER INC-2009245814

PATIENT
  Sex: Female

DRUGS (1)
  1. LYRICA [Suspect]
     Indication: NEURALGIA
     Dosage: UNK
     Route: 048
     Dates: start: 20080128, end: 20090519

REACTIONS (1)
  - DEATH [None]
